FAERS Safety Report 6683159-5 (Version None)
Quarter: 2010Q2

REPORT INFORMATION
  Report Type: 
  Country: None (occurrence: None)
  Receive Date: 20100413
  Receipt Date: 20100330
  Transmission Date: 20101027
  Serious: Yes (Hospitalization)
  Sender: FDA-Public Use
  Company Number: 8051902

PATIENT
  Sex: Female
  Weight: 68.4 kg

DRUGS (10)
  1. CERTOLIZUMAB PEGOL (CERTOLIZUMAB PEGOL) [Suspect]
     Indication: RHEUMATOID ARTHRITIS
     Dosage: 400 MG 1X/2 WEEKS SUBCUTANEOUS, 200 MG 1X/2 WEEKS SUBCUTANEOUS, 200 MG 1X/2 WEEKS SUBCUTANEOUS
     Route: 058
     Dates: start: 20050810, end: 20060725
  2. CERTOLIZUMAB PEGOL (CERTOLIZUMAB PEGOL) [Suspect]
     Indication: RHEUMATOID ARTHRITIS
     Dosage: 400 MG 1X/2 WEEKS SUBCUTANEOUS, 200 MG 1X/2 WEEKS SUBCUTANEOUS, 200 MG 1X/2 WEEKS SUBCUTANEOUS
     Route: 058
     Dates: start: 20060809, end: 20090831
  3. CERTOLIZUMAB PEGOL (CERTOLIZUMAB PEGOL) [Suspect]
     Indication: RHEUMATOID ARTHRITIS
     Dosage: 400 MG 1X/2 WEEKS SUBCUTANEOUS, 200 MG 1X/2 WEEKS SUBCUTANEOUS, 200 MG 1X/2 WEEKS SUBCUTANEOUS
     Route: 058
     Dates: start: 20090923
  4. METHOTREXATE [Concomitant]
  5. MEDROL [Concomitant]
  6. FOLIC ACID [Concomitant]
  7. DIANE 35 [Concomitant]
  8. CANEPHRON [Concomitant]
  9. ISONIAZID [Concomitant]
  10. PYRIDOXINE HCL [Concomitant]

REACTIONS (5)
  - BODY TEMPERATURE INCREASED [None]
  - DRUG INEFFECTIVE [None]
  - HEADACHE [None]
  - PURULENCE [None]
  - SINUSITIS [None]
